FAERS Safety Report 24269485 (Version 1)
Quarter: 2024Q3

REPORT INFORMATION
  Report Type: Spontaneous
  Country: CN (occurrence: CN)
  Receive Date: 20240830
  Receipt Date: 20240830
  Transmission Date: 20241016
  Serious: Yes (Life-Threatening, Hospitalization, Other)
  Sender: GLAXOSMITHKLINE
  Company Number: CN-GLAXOSMITHKLINE-CN2024GSK108076

PATIENT

DRUGS (1)
  1. ZEJULA [Suspect]
     Active Substance: NIRAPARIB
     Indication: Ovarian cancer
     Dosage: 100 MG, QD
     Route: 048
     Dates: start: 20240320, end: 202406

REACTIONS (4)
  - Platelet count decreased [Unknown]
  - Retinal haemorrhage [Unknown]
  - Constipation [Unknown]
  - Decreased appetite [Unknown]
